FAERS Safety Report 10673704 (Version 1)
Quarter: 2014Q4

REPORT INFORMATION
  Report Type: Spontaneous
  Country: FR (occurrence: None)
  Receive Date: 20141222
  Receipt Date: 20141222
  Transmission Date: 20150529
  Serious: Yes (Other)
  Sender: FDA-Public Use
  Company Number: NSR_01737_2014

PATIENT
  Age: 45 Year
  Sex: Female

DRUGS (3)
  1. ZOPICLONE [Concomitant]
     Active Substance: ZOPICLONE
  2. VENLAFAXINE [Concomitant]
     Active Substance: VENLAFAXINE HYDROCHLORIDE
  3. BACLOFEN. [Suspect]
     Active Substance: BACLOFEN
     Indication: ALCOHOLISM
     Dosage: 210 MG DAILY (PROGESSIVE DOSE INCREASE)

REACTIONS (7)
  - Fatigue [None]
  - Nausea [None]
  - Poor quality sleep [None]
  - Headache [None]
  - Tinnitus [None]
  - Off label use [None]
  - Insomnia [None]
